FAERS Safety Report 17858809 (Version 2)
Quarter: 2020Q2

REPORT INFORMATION
  Report Type: Report from Study
  Country: None (occurrence: US)
  Receive Date: 20200604
  Receipt Date: 20200605
  Transmission Date: 20200714
  Serious: No
  Sender: FDA-Public Use
  Company Number: US-US WORLDMEDS, LLC-USW202002-000391

PATIENT
  Sex: Male

DRUGS (1)
  1. APOKYN [Suspect]
     Active Substance: APOMORPHINE HYDROCHLORIDE
     Indication: PARKINSON^S DISEASE
     Dosage: 10 MG/ML 3 ML CARTRIDGE 1 EA CART, UP TO 0.5 ML/DOSE UNDER THE SKIN, DO NOT EXCEED 2 DOSES PER DAY
     Route: 058

REACTIONS (1)
  - Blood pressure decreased [Unknown]
